FAERS Safety Report 4370805-4 (Version None)
Quarter: 2004Q2

REPORT INFORMATION
  Report Type: 
  Country: None (occurrence: None)
  Receive Date: 20040604
  Receipt Date: 20040526
  Transmission Date: 20050107
  Serious: Yes (Death, Hospitalization)
  Sender: FDA-Public Use
  Company Number: DE-JNJFOC-20040506261

PATIENT
  Sex: Female

DRUGS (11)
  1. TRAMAL [Suspect]
     Route: 049
  2. VIOXX [Interacting]
     Route: 049
  3. FALITHROM [Interacting]
     Indication: THROMBOSIS PROPHYLAXIS
     Route: 049
  4. FALITHROM [Interacting]
     Indication: ARRHYTHMIA
     Route: 049
  5. AQUAPHOR [Concomitant]
     Route: 049
  6. AQUAPHOR [Concomitant]
     Route: 049
  7. AQUAPHOR [Concomitant]
     Route: 049
  8. AQUAPHOR [Concomitant]
     Indication: ESSENTIAL HYPERTENSION
     Route: 049
  9. METOPROLOL SUCCINATE [Concomitant]
     Route: 049
  10. METOPROLOL SUCCINATE [Concomitant]
     Indication: ESSENTIAL HYPERTENSION
     Route: 049
  11. DIGITOXIN TAB [Concomitant]
     Route: 049

REACTIONS (15)
  - ACTIVATED PARTIAL THROMBOPLASTIN TIME PROLONGED [None]
  - BLOOD CALCIUM DECREASED [None]
  - BLOOD CREATINE INCREASED [None]
  - BLOOD UREA INCREASED [None]
  - CARDIOACTIVE DRUG LEVEL INCREASED [None]
  - DRUG INTERACTION [None]
  - GASTRITIS EROSIVE [None]
  - GASTROINTESTINAL HAEMORRHAGE [None]
  - HAEMATEMESIS [None]
  - HAEMATOCRIT DECREASED [None]
  - HAEMOGLOBIN DECREASED [None]
  - INTERNATIONAL NORMALISED RATIO INCREASED [None]
  - MELAENA [None]
  - MUCOSAL HAEMORRHAGE [None]
  - PETECHIAE [None]
